FAERS Safety Report 4955399-4 (Version None)
Quarter: 2006Q1

REPORT INFORMATION
  Report Type: 
  Country: None (occurrence: None)
  Receive Date: 20060328
  Receipt Date: 20060317
  Transmission Date: 20060701
  Serious: Yes (Death)
  Sender: FDA-Public Use
  Company Number: GB-AVENTIS-200612717GDDC

PATIENT
  Age: 70 Year
  Sex: Male
  Weight: 57 kg

DRUGS (5)
  1. DOCETAXEL [Suspect]
     Indication: BRONCHIAL CARCINOMA
     Route: 042
     Dates: start: 20060222, end: 20060222
  2. DOCETAXEL [Suspect]
     Indication: LUNG NEOPLASM MALIGNANT
     Route: 042
     Dates: start: 20060222, end: 20060222
  3. DEXAMETHASONE TAB [Concomitant]
     Dosage: DOSE: 8 MG
     Route: 048
     Dates: start: 20060221
  4. KYTRIL [Concomitant]
     Dosage: DOSE: 3 MG
     Route: 042
     Dates: start: 20060222
  5. DOMPERIDONE [Concomitant]
     Dosage: DOSE: 20 MG
     Route: 048
     Dates: start: 20060222

REACTIONS (1)
  - CARDIAC ARREST [None]
